FAERS Safety Report 24995502 (Version 1)
Quarter: 2025Q1

REPORT INFORMATION
  Report Type: Spontaneous
  Country: US (occurrence: None)
  Receive Date: 20250221
  Receipt Date: 20250221
  Transmission Date: 20250408
  Serious: No
  Sender: FDA-CTU
  Company Number: None

PATIENT
  Age: 33 Year
  Sex: Female
  Weight: 160.2 kg

DRUGS (27)
  1. WEGOVY [Suspect]
     Active Substance: SEMAGLUTIDE
     Indication: Weight decreased
     Route: 058
  2. COREG [Concomitant]
     Active Substance: CARVEDILOL
  3. CORLANOR [Concomitant]
     Active Substance: IVABRADINE HYDROCHLORIDE
  4. LOSARTAN [Concomitant]
     Active Substance: LOSARTAN
  5. BUMEX [Concomitant]
     Active Substance: BUMETANIDE
  6. OMNARIS [Concomitant]
     Active Substance: CICLESONIDE
  7. DULERA [Concomitant]
     Active Substance: FORMOTEROL FUMARATE DIHYDRATE\MOMETASONE FUROATE
  8. SPIRIVA [Concomitant]
     Active Substance: TIOTROPIUM BROMIDE MONOHYDRATE
  9. respimat [Concomitant]
  10. XOPENEX [Concomitant]
     Active Substance: LEVALBUTEROL HYDROCHLORIDE
  11. DUONEB [Concomitant]
     Active Substance: ALBUTEROL SULFATE\IPRATROPIUM BROMIDE
  12. TOPAMAX [Concomitant]
     Active Substance: TOPIRAMATE
  13. TRINTELLIX [Concomitant]
     Active Substance: VORTIOXETINE HYDROBROMIDE
  14. XANAX [Concomitant]
     Active Substance: ALPRAZOLAM
  15. SONATA [Concomitant]
     Active Substance: ZALEPLON
  16. LYRICA [Concomitant]
     Active Substance: PREGABALIN
  17. SPIRONOLACTONE [Concomitant]
     Active Substance: SPIRONOLACTONE
  18. REYVOW [Concomitant]
     Active Substance: LASMIDITAN
  19. MIEBO [Concomitant]
     Active Substance: PERFLUOROHEXYLOCTANE
  20. CABTREO [Concomitant]
     Active Substance: ADAPALENE\BENZOYL PEROXIDE\CLINDAMYCIN PHOSPHATE
  21. ZANAFLEX [Concomitant]
     Active Substance: TIZANIDINE HYDROCHLORIDE
  22. BOTOX [Concomitant]
     Active Substance: ONABOTULINUMTOXINA
  23. oxipital nerve blocks [Concomitant]
  24. CABOTEGRAVIR [Suspect]
     Active Substance: CABOTEGRAVIR
  25. DEXILANT [Concomitant]
     Active Substance: DEXLANSOPRAZOLE
  26. VITAMIN D [Concomitant]
     Active Substance: VITAMIN D NOS
  27. B12 [Concomitant]

REACTIONS (4)
  - Nausea [None]
  - Diarrhoea [None]
  - Vomiting [None]
  - Pain [None]

NARRATIVE: CASE EVENT DATE: 20250220
